FAERS Safety Report 7273403-8 (Version None)
Quarter: 2011Q1

REPORT INFORMATION
  Report Type: 
  Country: None (occurrence: None)
  Receive Date: 20110203
  Receipt Date: 20100812
  Transmission Date: 20110831
  Serious: No
  Sender: FDA-Public Use
  Company Number: US-ABBOTT-10P-163-0664061-00

PATIENT
  Sex: Female

DRUGS (3)
  1. SYNTHROID [Suspect]
     Indication: HYPOTHYROIDISM
     Dosage: TUESDAYS, THURSDAYS, SATURDAYS, SUNDAYS
  2. SYNTHROID [Suspect]
  3. SYNTHROID [Suspect]
     Dosage: ADDITIONAL 1/2 -25MCG TAB, TWICE A WEEK

REACTIONS (4)
  - RASH GENERALISED [None]
  - GENERALISED OEDEMA [None]
  - OEDEMA PERIPHERAL [None]
  - LIP SWELLING [None]
